FAERS Safety Report 17916168 (Version 1)
Quarter: 2020Q2

REPORT INFORMATION
  Report Type: Spontaneous
  Country: US (occurrence: US)
  Receive Date: 20200619
  Receipt Date: 20200619
  Transmission Date: 20200714
  Serious: Yes (Hospitalization)
  Sender: FDA-Public Use
  Company Number: None

PATIENT
  Age: 51 Year
  Sex: Male
  Weight: 84 kg

DRUGS (2)
  1. REMDESIVIR (EUA) (REMDESIVIR (EUA)) [Suspect]
     Active Substance: REMDESIVIR
     Indication: UPPER RESPIRATORY TRACT INFECTION
     Dosage: ?          OTHER ROUTE:IV?
     Dates: start: 20200526, end: 20200531
  2. REMDESIVIR (EUA) (REMDESIVIR (EUA)) [Suspect]
     Active Substance: REMDESIVIR
     Indication: COVID-19
     Dosage: ?          OTHER ROUTE:IV?
     Dates: start: 20200526, end: 20200531

REACTIONS (6)
  - Aspartate aminotransferase increased [None]
  - Blood urea increased [None]
  - Blood creatinine increased [None]
  - Hepatic enzyme increased [None]
  - Respiratory disorder [None]
  - Acute kidney injury [None]

NARRATIVE: CASE EVENT DATE: 20200531
